FAERS Safety Report 17514496 (Version 1)
Quarter: 2020Q1

REPORT INFORMATION
  Report Type: Spontaneous
  Country: NL (occurrence: NL)
  Receive Date: 20200307
  Receipt Date: 20200307
  Transmission Date: 20200409
  Serious: Yes (Hospitalization)
  Sender: FDA-Public Use
  Company Number: NL-ROCHE-2562238

PATIENT
  Age: 28 Year
  Sex: Female
  Weight: 54 kg

DRUGS (7)
  1. ADVAGRAF [Concomitant]
     Active Substance: TACROLIMUS
     Dosage: 18MG (1 X DAAGS 5
     Route: 065
  2. FOLIUMZUUR [Concomitant]
     Active Substance: FOLIC ACID
     Dosage: TABLET, 0,5 MG (MILLIGRAM)
     Route: 065
  3. CELLCEPT [Suspect]
     Active Substance: MYCOPHENOLATE MOFETIL\MYCOPHENOLATE MOFETIL HYDROCHLORIDE
     Indication: RENAL TRANSPLANT
     Dosage: TABLET, 500 MG (MILLIGRAM), 2 KEER PER DAG, 1
     Route: 065
     Dates: start: 20200107, end: 20200203
  4. ADVAGRAF [Concomitant]
     Active Substance: TACROLIMUS
     Dosage: 18MG 1 X DAAGS3 VAN 1 MG)
     Route: 065
  5. ABSTRAL [Concomitant]
     Active Substance: FENTANYL CITRATE
     Dosage: TABLET, 100 MCG (MICROGRAM)
     Route: 065
  6. FERROFUMARAAT [Concomitant]
     Dosage: TABLET, 200 MG (MILLIGRAM)
     Route: 065
  7. PANTOPRAZOLE [Concomitant]
     Active Substance: PANTOPRAZOLE
     Dosage: MAAGSAPRESISTENTE TABLET, 20 MG (MILLIGRAM)
     Route: 065

REACTIONS (11)
  - Arthralgia [Recovered/Resolved]
  - Diarrhoea [Recovered/Resolved]
  - Back pain [Recovered/Resolved]
  - Skin burning sensation [Recovered/Resolved]
  - Vomiting [Recovered/Resolved]
  - Nausea [Recovered/Resolved]
  - Cholecystitis [Recovered/Resolved]
  - Pyrexia [Recovered/Resolved]
  - Urinary tract infection [Recovered/Resolved]
  - Pulmonary pain [Recovered/Resolved]
  - Pneumonia [Recovered/Resolved]

NARRATIVE: CASE EVENT DATE: 20200108
